FAERS Safety Report 11704693 (Version 1)
Quarter: 2015Q4

REPORT INFORMATION
  Report Type: Spontaneous
  Country: US (occurrence: US)
  Receive Date: 20151106
  Receipt Date: 20151106
  Transmission Date: 20160304
  Serious: No
  Sender: FDA-Public Use
  Company Number: US-PFIZER INC-2015354115

PATIENT
  Sex: Female

DRUGS (2)
  1. LETROZOLE. [Suspect]
     Active Substance: LETROZOLE
     Dosage: 1 PILL, DAILY
  2. IBRANCE [Suspect]
     Active Substance: PALBOCICLIB
     Dosage: 1 PILL FOR 21 DAYS, THEN 7 DAYS OFF

REACTIONS (2)
  - Lacrimation increased [Not Recovered/Not Resolved]
  - Vision blurred [Not Recovered/Not Resolved]
